FAERS Safety Report 19428920 (Version 1)
Quarter: 2021Q2

REPORT INFORMATION
  Report Type: Spontaneous
  Country: US (occurrence: US)
  Receive Date: 20210617
  Receipt Date: 20210617
  Transmission Date: 20210717
  Serious: Yes (Hospitalization)
  Sender: FDA-Public Use
  Company Number: None

PATIENT
  Sex: Male

DRUGS (1)
  1. TESTOPEL [Suspect]
     Active Substance: TESTOSTERONE
     Indication: TESTICULAR FAILURE
     Dosage: ?          OTHER DOSE:10 PELLETS;OTHER FREQUENCY:EVERY 4?5 MONTHS;?
     Route: 058
     Dates: start: 20210122

REACTIONS (1)
  - Hospitalisation [None]
